FAERS Safety Report 19613963 (Version 1)
Quarter: 2021Q3

REPORT INFORMATION
  Report Type: Spontaneous
  Country: FR (occurrence: FR)
  Receive Date: 20210727
  Receipt Date: 20210727
  Transmission Date: 20211014
  Serious: Yes (Hospitalization)
  Sender: FDA-Public Use
  Company Number: FR-ACCORD-232993

PATIENT
  Age: 42 Year
  Sex: Male

DRUGS (2)
  1. ESCITALOPRAM BIOGARAN [Suspect]
     Active Substance: ESCITALOPRAM OXALATE
     Indication: PRODUCT USED FOR UNKNOWN INDICATION
     Dosage: 15 MG SCORED FILM?COATED TABLETS
     Route: 048
  2. QUETIAPINE/QUETIAPINE FUMARATE [Suspect]
     Active Substance: QUETIAPINE FUMARATE
     Indication: PRODUCT USED FOR UNKNOWN INDICATION
     Dosage: NO OTHER INFORMATION
     Route: 048

REACTIONS (2)
  - Coma [Recovered/Resolved]
  - Bradypnoea [Recovered/Resolved]
